FAERS Safety Report 8383796-6 (Version None)
Quarter: 2012Q1

REPORT INFORMATION
  Report Type: 
  Country: None (occurrence: None)
  Receive Date: 20120323
  Receipt Date: 20110426
  Transmission Date: 20120608
  Serious: Yes (Other)
  Sender: FDA-Public Use
  Company Number: 163-21880-11030766

PATIENT
  Age: 69 Year
  Sex: Male

DRUGS (25)
  1. DECADRON [Concomitant]
  2. NOVOLIN 9INSULIN HUMAN INJECTION, ISOPHANE) [Concomitant]
  3. XANAX [Concomitant]
  4. OXYCODONE /APAP (OXYCODONE/APAP) [Concomitant]
  5. PENICILLIN-VK [Concomitant]
  6. ISOSORBIDE (ISOSORBIDE) [Concomitant]
  7. PROZAC [Concomitant]
  8. NITROGLYCERIN [Concomitant]
  9. METFORMIN HCL [Concomitant]
  10. LORCET-HD [Concomitant]
  11. REVLIMID [Suspect]
     Indication: MULTIPLE MYELOMA
     Dosage: 25 MG, DAILY X 21 DAYS, 7 DAYS REST, PO
     Route: 048
     Dates: start: 20100109
  12. PROVENTIL [Concomitant]
  13. NORVASC [Concomitant]
  14. AGGRENOX [Concomitant]
  15. MEGACE ES (MEGESTROL ACETATE) [Concomitant]
  16. ATENOLOL [Concomitant]
  17. COZAAR [Concomitant]
  18. NASONEX [Suspect]
  19. OXYCODONE HCL [Concomitant]
  20. COUMADIN [Concomitant]
  21. NEXIUM [Concomitant]
  22. NIASPAN [Concomitant]
  23. RANEXA [Concomitant]
  24. LIPITOR [Concomitant]
  25. ASPIRIN [Concomitant]

REACTIONS (1)
  - RASH [None]
